FAERS Safety Report 8070330-3 (Version None)
Quarter: 2012Q1

REPORT INFORMATION
  Report Type: 
  Country: None (occurrence: None)
  Receive Date: 20120125
  Receipt Date: 20120120
  Transmission Date: 20120608
  Serious: Yes (Other)
  Sender: FDA-Public Use
  Company Number: US-ABBOTT-11P-163-0872844-00

PATIENT
  Age: 59 Year
  Sex: Male

DRUGS (1)
  1. ANDROGEL [Suspect]
     Indication: HYPOGONADISM
     Dates: start: 20070501

REACTIONS (1)
  - PULMONARY EMBOLISM [None]
